FAERS Safety Report 12828265 (Version 4)
Quarter: 2017Q4

REPORT INFORMATION
  Report Type: Spontaneous
  Country: US (occurrence: US)
  Receive Date: 20161007
  Receipt Date: 20171002
  Transmission Date: 20180320
  Serious: Yes (Hospitalization)
  Sender: FDA-Public Use
  Company Number: US-PFIZER INC-2016449546

PATIENT
  Age: 90 Year
  Sex: Male

DRUGS (24)
  1. WARFARIN [Interacting]
     Active Substance: WARFARIN
     Dosage: 4 MG, DAILY (28 MG WEEKLY DAY 7)
     Route: 048
  2. WARFARIN [Interacting]
     Active Substance: WARFARIN
     Dosage: 4 MG, DAILY (28 MG WEEKLY DAY 27))
     Route: 048
  3. WARFARIN [Interacting]
     Active Substance: WARFARIN
     Dosage: 4 MG, DAILY (28 MG WEEKLY DAY 56 THIRD GEMACITABINE DOSE
     Route: 048
  4. TROSPIUM [Concomitant]
     Active Substance: TROSPIUM
     Dosage: 20 MG, 2X/DAY
     Route: 048
  5. WARFARIN [Interacting]
     Active Substance: WARFARIN
     Dosage: 4 MG, DAILY (28 MG WEEKLY DAY 42)
     Route: 048
  6. CIPROFLOXACIN. [Concomitant]
     Active Substance: CIPROFLOXACIN
     Indication: ANTIBIOTIC THERAPY
     Dosage: 400 MG, DAILY
     Route: 048
  7. WARFARIN [Interacting]
     Active Substance: WARFARIN
     Dosage: 3 MG, DAILY (21 MG WEEKLY DAY 4)
     Route: 048
  8. WARFARIN [Interacting]
     Active Substance: WARFARIN
     Dosage: 3 MG TUESDAYS, THURSDAYS, AND SATURDAYS AND 4 MG SUNDAYS, MONDAYS,WEDNESDAYS, AND FRIDAYS 25 MG
     Route: 048
  9. WARFARIN [Interacting]
     Active Substance: WARFARIN
     Dosage: 1 MG, UNK DAY 27
     Route: 048
  10. WARFARIN [Interacting]
     Active Substance: WARFARIN
     Dosage: 4 MG, DAILY (28 MG WEEKLY DAY 30 )
     Route: 048
  11. WARFARIN [Interacting]
     Active Substance: WARFARIN
     Dosage: 4 MG, DAILY (28 MG WEEKLY DAY 35 (FIRST GEMCITABINE DOSE)
     Route: 048
  12. WARFARIN [Interacting]
     Active Substance: WARFARIN
     Dosage: 4 MG, DAILY (28 MG WEEKLY DAY 49)
     Route: 048
  13. VANCOMYCIN [Concomitant]
     Active Substance: VANCOMYCIN
     Indication: URINARY TRACT INFECTION
     Dosage: UNK
  14. CARBOPLATIN. [Concomitant]
     Active Substance: CARBOPLATIN
     Indication: BLADDER CANCER
     Dosage: UNK, CYCLIC (5 CYCLES)
  15. GEMCITABINE HYDROCHLORIDE. [Interacting]
     Active Substance: GEMCITABINE HYDROCHLORIDE
     Dosage: 2 G, UNK
     Route: 043
  16. TAMSULOSIN [Concomitant]
     Active Substance: TAMSULOSIN
     Dosage: 0.4 MG, 1X/DAY
     Route: 048
  17. GEMCITABINE HYDROCHLORIDE. [Suspect]
     Active Substance: GEMCITABINE HYDROCHLORIDE
     Indication: BLADDER CANCER
     Dosage: UNK, CYCLIC ( 5 CYCLES ONE DOSE PER WEEK FOR SIX WEEKS)
     Route: 043
  18. CALCIUM CARBONATE. [Concomitant]
     Active Substance: CALCIUM CARBONATE
     Dosage: 650 MG, 1X/DAY
  19. CHOLECALCIFEROL [Concomitant]
     Active Substance: CHOLECALCIFEROL
     Dosage: 400 IU, 1X/DAY
  20. WARFARIN [Interacting]
     Active Substance: WARFARIN
     Indication: DEEP VEIN THROMBOSIS
     Dosage: 2 MG, DAILY (14 MG WEEKLY DAY 1)
     Route: 048
  21. WARFARIN [Interacting]
     Active Substance: WARFARIN
     Dosage: 2 MG, UNK DAY 21
     Route: 048
  22. WARFARIN [Interacting]
     Active Substance: WARFARIN
     Dosage: 25 MG, WEEKLY DAY 21
     Route: 048
  23. WARFARIN [Interacting]
     Active Substance: WARFARIN
     Dosage: 4 MG, DAILY (28 MG WEEKLY DAY 63 FOURTH GEMCITABINE DOSE)
     Route: 048
  24. CEFEPIME [Concomitant]
     Active Substance: CEFEPIME HYDROCHLORIDE
     Indication: URINARY TRACT INFECTION
     Dosage: 1 G, DAILY
     Route: 042

REACTIONS (3)
  - Drug interaction [Unknown]
  - International normalised ratio increased [Recovered/Resolved]
  - Haematoma [Recovered/Resolved]
